FAERS Safety Report 15099982 (Version 1)
Quarter: 2018Q3

REPORT INFORMATION
  Report Type: Spontaneous
  Country: CH (occurrence: CH)
  Receive Date: 20180703
  Receipt Date: 20180703
  Transmission Date: 20181010
  Serious: Yes (Other)
  Sender: FDA-Public Use
  Company Number: CH-BIOGEN-2017BI00499564

PATIENT
  Age: 42 Year
  Sex: Female

DRUGS (2)
  1. ZINBRYTA PEN [Suspect]
     Active Substance: DACLIZUMAB
     Route: 058
     Dates: start: 20170713, end: 20170810
  2. ZINBRYTA PEN [Suspect]
     Active Substance: DACLIZUMAB
     Indication: RELAPSING-REMITTING MULTIPLE SCLEROSIS
     Route: 058
     Dates: start: 20170714

REACTIONS (4)
  - Arthralgia [Recovered/Resolved]
  - Asthenia [Recovered/Resolved]
  - Myalgia [Recovered/Resolved]
  - Constipation [Recovered/Resolved]

NARRATIVE: CASE EVENT DATE: 20170723
